FAERS Safety Report 11518898 (Version 1)
Quarter: 2015Q3

REPORT INFORMATION
  Report Type: Report from Study
  Country: TR (occurrence: TR)
  Receive Date: 20150917
  Receipt Date: 20150917
  Transmission Date: 20151125
  Serious: Yes (Other)
  Sender: FDA-Public Use
  Company Number: PHHY2015TR110089

PATIENT
  Sex: Female
  Weight: 11 kg

DRUGS (2)
  1. SOMATROPIN [Suspect]
     Active Substance: SOMATROPIN
     Dosage: 0.5 MG, QD ( FOR 1 DAY)
     Route: 058
     Dates: start: 20150318
  2. SOMATROPIN [Suspect]
     Active Substance: SOMATROPIN
     Indication: GROWTH HORMONE DEFICIENCY
     Dosage: 0.4 MG, QD (FOR 6 DAYS)
     Route: 058
     Dates: start: 20150318

REACTIONS (2)
  - Dysstasia [Not Recovered/Not Resolved]
  - Growth accelerated [Not Recovered/Not Resolved]
